FAERS Safety Report 19908897 (Version 2)
Quarter: 2021Q4

REPORT INFORMATION
  Report Type: Spontaneous
  Country: US (occurrence: US)
  Receive Date: 20211001
  Receipt Date: 20211008
  Transmission Date: 20220303
  Serious: Yes (Other)
  Sender: FDA-Public Use
  Company Number: US-JNJFOC-20210949294

PATIENT
  Age: 56 Year
  Sex: Female

DRUGS (1)
  1. TOPAMAX [Suspect]
     Active Substance: TOPIRAMATE
     Indication: Weight
     Route: 048
     Dates: start: 20210910, end: 20210913

REACTIONS (5)
  - Papilloedema [Unknown]
  - Intracranial pressure increased [Unknown]
  - Product use in unapproved indication [Unknown]
  - Off label use [Unknown]
  - Product label issue [Unknown]

NARRATIVE: CASE EVENT DATE: 20210901
